FAERS Safety Report 4567892-7 (Version None)
Quarter: 2005Q1

REPORT INFORMATION
  Report Type: 
  Country: None (occurrence: None)
  Receive Date: 20050202
  Receipt Date: 20041229
  Transmission Date: 20050727
  Serious: No
  Sender: FDA-Public Use
  Company Number: US-GLAXOSMITHKLINE-A0538827A

PATIENT
  Age: 74 Year
  Sex: Female

DRUGS (7)
  1. AVANDAMET [Suspect]
     Dosage: 1TAB IN THE MORNING
     Route: 048
  2. LEVOXYL [Concomitant]
  3. FUROSEMIDE [Concomitant]
  4. COZAAR [Concomitant]
  5. PRAVACHOL [Concomitant]
  6. ASPIRIN [Concomitant]
  7. OXYCODONE AND ACETAMINOPHEN [Concomitant]

REACTIONS (4)
  - HYPERGLYCAEMIA [None]
  - OEDEMA PERIPHERAL [None]
  - POLLAKIURIA [None]
  - RESTLESS LEGS SYNDROME [None]
